FAERS Safety Report 4550714-8 (Version None)
Quarter: 2004Q4

REPORT INFORMATION
  Report Type: 
  Country: None (occurrence: None)
  Receive Date: 20041217
  Receipt Date: 20040915
  Transmission Date: 20050328
  Serious: No
  Sender: FDA-Public Use
  Company Number: 2004-BP-08290BP

PATIENT
  Age: 75 Year
  Sex: Male

DRUGS (11)
  1. SPIRIVA [Suspect]
     Indication: CHRONIC OBSTRUCTIVE AIRWAYS DISEASE
     Dosage: 18 MCG (18 MCG), IH
     Route: 055
     Dates: start: 20040701, end: 20040912
  2. FOSAMAX [Concomitant]
  3. PROTONIX [Concomitant]
  4. ACETYLSALICYLIC ACID SRT [Concomitant]
  5. BEXTRA [Concomitant]
  6. GAVISCON [Concomitant]
  7. LASIX (LASIX) [Concomitant]
  8. ZOCOR [Concomitant]
  9. VERAPAMIL [Concomitant]
  10. GLUCOSAMINE (GLUCOSAMINE) [Concomitant]
  11. CLONDROITIN [Concomitant]

REACTIONS (3)
  - DRY MOUTH [None]
  - HOARSENESS [None]
  - PHARYNGOLARYNGEAL PAIN [None]
